FAERS Safety Report 17213846 (Version 2)
Quarter: 2020Q1

REPORT INFORMATION
  Report Type: Spontaneous
  Country: DE (occurrence: DE)
  Receive Date: 20191230
  Receipt Date: 20200206
  Transmission Date: 20200409
  Serious: Yes (Hospitalization)
  Sender: FDA-Public Use
  Company Number: DE-ROCHE-2501785

PATIENT
  Age: 57 Year
  Sex: Male

DRUGS (9)
  1. HALDOL [Suspect]
     Active Substance: HALOPERIDOL
     Indication: SCHIZOPHRENIA
     Route: 065
  2. HALDOL [Suspect]
     Active Substance: HALOPERIDOL
     Indication: PSYCHOTIC SYMPTOM
     Route: 065
  3. DIAZEPAM. [Suspect]
     Active Substance: DIAZEPAM
     Route: 065
  4. DIAZEPAM. [Suspect]
     Active Substance: DIAZEPAM
     Indication: PSYCHOTIC SYMPTOM
     Route: 065
  5. PIPAMPERONE [Suspect]
     Active Substance: PIPAMPERONE
     Indication: SLEEP DISORDER THERAPY
     Route: 065
  6. LEVOTHYROXINE. [Concomitant]
     Active Substance: LEVOTHYROXINE
  7. CARIPRAZINE [Suspect]
     Active Substance: CARIPRAZINE
     Indication: PSYCHOTIC SYMPTOM
     Route: 065
  8. CARIPRAZINE [Suspect]
     Active Substance: CARIPRAZINE
     Route: 065
     Dates: start: 20190221
  9. ACETYLSALICYLIC ACID [Concomitant]
     Active Substance: ASPIRIN

REACTIONS (7)
  - Hypersexuality [Recovered/Resolved]
  - Treatment noncompliance [Unknown]
  - Electrocardiogram QT prolonged [Unknown]
  - Aggression [Unknown]
  - Depression [Recovered/Resolved]
  - Psychotic symptom [Recovering/Resolving]
  - Sexual abuse [Unknown]

NARRATIVE: CASE EVENT DATE: 20190327
